FAERS Safety Report 5948218-0 (Version None)
Quarter: 2008Q4

REPORT INFORMATION
  Report Type: 
  Country: None (occurrence: None)
  Receive Date: 20081111
  Receipt Date: 20081029
  Transmission Date: 20090506
  Serious: Yes (Death, Hospitalization)
  Sender: FDA-Public Use
  Company Number: BR-ELI_LILLY_AND_COMPANY-BR200810007156

PATIENT
  Sex: Female

DRUGS (5)
  1. FORTEO [Suspect]
     Indication: OSTEOPOROSIS
     Dosage: 20 UG, DAILY (1/D)
     Route: 058
     Dates: start: 20071001
  2. CAPTOPRIL [Concomitant]
     Indication: BLOOD PRESSURE
     Dosage: UNK, UNKNOWN
     Route: 065
  3. CALDEA [Concomitant]
     Dosage: UNK, UNKNOWN
     Route: 065
  4. COMBIRON B 12 [Concomitant]
     Dosage: UNK, UNKNOWN
     Route: 065
  5. METHOTREXATE [Concomitant]
     Indication: OSTEOARTHRITIS
     Dosage: UNK, UNKNOWN
     Route: 065

REACTIONS (7)
  - ACUTE HEPATIC FAILURE [None]
  - ANAEMIA [None]
  - ANOREXIA [None]
  - GASTRIC CANCER [None]
  - GASTRIC PERFORATION [None]
  - UPPER GASTROINTESTINAL HAEMORRHAGE [None]
  - YELLOW SKIN [None]
